FAERS Safety Report 15425140 (Version 1)
Quarter: 2018Q4

REPORT INFORMATION
  Report Type: Spontaneous
  Country: US (occurrence: US)
  Receive Date: 20180925
  Receipt Date: 20180925
  Transmission Date: 20190204
  Serious: No
  Sender: FDA-Public Use
  Company Number: US-THERAPEUTICSMD-2018TMD00129

PATIENT
  Age: 53 Year
  Sex: Female
  Weight: 72.56 kg

DRUGS (10)
  1. DIPHENHYDRAMINE. [Concomitant]
     Active Substance: DIPHENHYDRAMINE
     Dosage: UNK, 2X/DAY
  2. IMVEXXY [Suspect]
     Active Substance: ESTRADIOL
     Dosage: 10 MICROGRAM, 2X/WEEK
     Route: 067
     Dates: start: 201808, end: 201808
  3. RED RICE YEAST [Concomitant]
     Active Substance: DIETARY SUPPLEMENT
  4. VITAMIN D [Concomitant]
     Active Substance: CHOLECALCIFEROL
  5. MULTIVITAMINS [Concomitant]
     Active Substance: VITAMINS
     Dosage: 2 DOSAGE UNITS, 1X/DAY
  6. IMVEXXY [Suspect]
     Active Substance: ESTRADIOL
     Indication: ATROPHIC VULVOVAGINITIS
     Dosage: 10 MICROGRAM, 1X/DAY
     Route: 067
     Dates: start: 201807, end: 201808
  7. NP THYROID [Concomitant]
     Active Substance: LEVOTHYROXINE\LIOTHYRONINE
     Dosage: 90 MG, 1X/DAY
  8. UNSPECIFIED STATIN [Concomitant]
     Dosage: UNK
  9. VITAMIN B [Concomitant]
     Active Substance: VITAMIN B
  10. VITAMIN C [Concomitant]
     Active Substance: ASCORBIC ACID

REACTIONS (1)
  - Fungal infection [Recovering/Resolving]

NARRATIVE: CASE EVENT DATE: 201807
